FAERS Safety Report 25848558 (Version 1)
Quarter: 2025Q3

REPORT INFORMATION
  Report Type: Spontaneous
  Country: JP (occurrence: JP)
  Receive Date: 20250925
  Receipt Date: 20250925
  Transmission Date: 20251021
  Serious: Yes (Hospitalization)
  Sender: PFIZER
  Company Number: JP-PFIZER INC-PV202500115200

PATIENT
  Age: 19 Year
  Sex: Male

DRUGS (2)
  1. SIROLIMUS [Suspect]
     Active Substance: SIROLIMUS
     Indication: Lymphangioma
     Route: 048
     Dates: end: 2021
  2. SIROLIMUS [Suspect]
     Active Substance: SIROLIMUS
     Indication: Gorham^s disease

REACTIONS (3)
  - Decreased immune responsiveness [Unknown]
  - Nasopharyngitis [Unknown]
  - Pyrexia [Unknown]
